FAERS Safety Report 9060189 (Version 2)
Quarter: 2013Q2

REPORT INFORMATION
  Report Type: Report from Study
  Country: AU (occurrence: AU)
  Receive Date: 20130212
  Receipt Date: 20130423
  Transmission Date: 20140414
  Serious: Yes (Other)
  Sender: FDA-Public Use
  Company Number: PHNR2006AU00701

PATIENT
  Age: 33 Year
  Sex: Female
  Weight: 87 kg

DRUGS (8)
  1. CLOZARIL [Suspect]
     Indication: SCHIZOPHRENIA
     Dosage: 525 MG, 12.5 - 525 MG PER DAY
     Route: 048
     Dates: start: 20051125, end: 20060512
  2. CLOZARIL [Suspect]
     Dosage: UNK
     Route: 048
  3. CLOZARIL [Suspect]
     Dosage: UNK
     Route: 048
     Dates: start: 20130205
  4. OLANZAPINE [Concomitant]
     Dosage: 210 MG, FORTNIGHTLY
  5. ZUCLOPENTHIXOL DECANOATE [Concomitant]
     Dosage: 400 MG/ML, FORTNIGHTLY
  6. ALPRAZOLAM [Concomitant]
     Dosage: 0.25 MG MANE
  7. BISOPROLOL [Concomitant]
     Dosage: 2.5 MG, MANE
     Route: 048
  8. BICOR [Concomitant]
     Dosage: 2.5 MG, DAILY

REACTIONS (14)
  - Cardiomyopathy [Unknown]
  - Left ventricular dysfunction [Recovered/Resolved]
  - Ejection fraction decreased [Unknown]
  - Dyspnoea exertional [Unknown]
  - Malaise [Unknown]
  - Gamma-glutamyltransferase increased [Unknown]
  - Alanine aminotransferase increased [Unknown]
  - Blood triglycerides increased [Recovered/Resolved]
  - Glomerular filtration rate decreased [Unknown]
  - Vitamin D decreased [Unknown]
  - Blood prolactin increased [Unknown]
  - Neutrophil count increased [Unknown]
  - White blood cell count increased [Unknown]
  - Heart rate increased [Unknown]
